FAERS Safety Report 16636941 (Version 1)
Quarter: 2019Q3

REPORT INFORMATION
  Report Type: Spontaneous
  Country: US (occurrence: US)
  Receive Date: 20190613
  Receipt Date: 20190613
  Transmission Date: 20191004
  Serious: No
  Sender: FDA-Public Use
  Company Number: None

PATIENT
  Age: 54 Year
  Sex: Female

DRUGS (1)
  1. TICE BCG [Suspect]
     Active Substance: BACILLUS CALMETTE-GUERIN SUBSTRAIN TICE LIVE ANTIGEN
     Indication: BLADDER CANCER
     Dosage: BLADDER INSTALLATION?
     Dates: start: 20190422

REACTIONS (3)
  - Dysuria [None]
  - Pollakiuria [None]
  - Micturition urgency [None]

NARRATIVE: CASE EVENT DATE: 20190422
